FAERS Safety Report 5415680-1 (Version None)
Quarter: 2007Q3

REPORT INFORMATION
  Report Type: 
  Country: None (occurrence: None)
  Receive Date: 20070815
  Receipt Date: 20070808
  Transmission Date: 20080115
  Serious: Yes (Death)
  Sender: FDA-Public Use
  Company Number: US-TYCO HEALTHCARE/MALLINCKRODT-T200700836

PATIENT

DRUGS (1)
  1. METHADONE HCL [Suspect]
     Indication: BACK PAIN

REACTIONS (3)
  - ACCIDENTAL POISONING [None]
  - DRUG TOXICITY [None]
  - RESPIRATORY FAILURE [None]
